FAERS Safety Report 17042708 (Version 1)
Quarter: 2019Q4

REPORT INFORMATION
  Report Type: Spontaneous
  Country: US (occurrence: US)
  Receive Date: 20191115
  Receipt Date: 20191115
  Transmission Date: 20200122
  Serious: Yes (Disabling)
  Sender: FDA-Public Use
  Company Number: None

PATIENT
  Age: 71 Year
  Sex: Male
  Weight: 75.15 kg

DRUGS (1)
  1. LEVOFLOXACIN 500 MG TABLET COMMON BRAND(S): LEVAQUIN [Suspect]
     Active Substance: LEVOFLOXACIN
     Indication: DEVICE RELATED INFECTION
     Dosage: ?          QUANTITY:1 TABLET(S);?
     Route: 048
     Dates: start: 20191025, end: 20191103

REACTIONS (9)
  - Fatigue [None]
  - Chills [None]
  - Dizziness [None]
  - Arthralgia [None]
  - Feeling cold [None]
  - Headache [None]
  - Hypoaesthesia [None]
  - Insomnia [None]
  - Decreased appetite [None]

NARRATIVE: CASE EVENT DATE: 20191031
